FAERS Safety Report 7414686-0 (Version None)
Quarter: 2011Q2

REPORT INFORMATION
  Report Type: 
  Country: None (occurrence: None)
  Receive Date: 20110414
  Receipt Date: 20090930
  Transmission Date: 20111010
  Serious: Yes (Other)
  Sender: FDA-Public Use
  Company Number: US-BAYER-2011-029424

PATIENT
  Age: 71 Year
  Sex: Male
  Weight: 114.74 kg

DRUGS (25)
  1. OXYCODONE [Concomitant]
     Dosage: 5MG EVERY FOUR HOURS
     Route: 048
  2. INDERAL [Concomitant]
     Route: 048
  3. POTASSIUM CHLORIDE [Concomitant]
     Dosage: 60 MEQ, UNK
     Route: 042
     Dates: start: 20050330
  4. TRASYLOL [Suspect]
     Indication: CORONARY ARTERY BYPASS
     Dosage: 1CC TEST DOSE
     Route: 042
     Dates: start: 20050330, end: 20050330
  5. RANITIDINE [Concomitant]
     Dosage: 150 MG, UNK
     Route: 048
  6. GABAPENTIN [Concomitant]
     Dosage: 400 MG, UNK
     Route: 048
  7. THEO-DUR [Concomitant]
     Route: 048
  8. PROTAMINE SULFATE [Concomitant]
     Dosage: 450 MG, UNK
     Route: 042
     Dates: start: 20050330
  9. SODIUM BICARBONATE [Concomitant]
     Dosage: UNK
     Route: 042
     Dates: start: 20050330
  10. CALCIUM CHLORIDE [Concomitant]
     Dosage: UNK
     Route: 042
     Dates: start: 20050330
  11. TRASYLOL [Suspect]
     Dosage: 50CC/HOUR INFUSION
     Route: 042
     Dates: start: 20050330, end: 20050330
  12. INSULIN [Concomitant]
     Dosage: UNK
     Route: 042
     Dates: start: 20050330
  13. ZINACEF [Concomitant]
     Dosage: 1.5 G, UNK
     Route: 042
     Dates: start: 20050330
  14. PRECEDEX [Concomitant]
     Dosage: UNK
     Route: 042
     Dates: start: 20050330
  15. ZITHROMAX [Concomitant]
     Dosage: 250 MG Z-PACK
     Route: 048
  16. NEO-SYNEPHRINOL [Concomitant]
     Dosage: UNK
     Route: 042
     Dates: start: 20050330
  17. ADVAIR HFA [Concomitant]
     Dosage: INHALATION
  18. HEPARIN [Concomitant]
     Dosage: 40000 U, UNK
     Route: 042
     Dates: start: 20050330
  19. LIDOCAINE [Concomitant]
     Dosage: 100 MG, UNK
     Route: 042
     Dates: start: 20050330
  20. INSULIN [Concomitant]
     Route: 058
  21. PROPOFOL [Concomitant]
     Dosage: UNK
     Route: 042
     Dates: start: 20050330
  22. MAGNESIUM SULFATE [Concomitant]
     Dosage: UNK
     Route: 042
     Dates: start: 20050330
  23. TRASYLOL [Suspect]
     Dosage: 199CC LOADING DOSE
     Route: 042
     Dates: start: 20050330, end: 20050330
  24. MIDAZOLAM [Concomitant]
     Dosage: 4 MG, UNK
     Route: 042
     Dates: start: 20050330
  25. MANNITOL [Concomitant]
     Dosage: UNK
     Route: 042
     Dates: start: 20050330

REACTIONS (9)
  - DISABILITY [None]
  - NERVOUSNESS [None]
  - INJURY [None]
  - DEPRESSION [None]
  - EMOTIONAL DISTRESS [None]
  - PAIN [None]
  - FEAR OF DEATH [None]
  - RENAL FAILURE [None]
  - RENAL INJURY [None]
